FAERS Safety Report 8388004-8 (Version None)
Quarter: 2012Q2

REPORT INFORMATION
  Report Type: 
  Country: None (occurrence: None)
  Receive Date: 20120525
  Receipt Date: 20120511
  Transmission Date: 20120825
  Serious: Yes (Hospitalization)
  Sender: FDA-Public Use
  Company Number: TR-WATSON-2012-08373

PATIENT
  Age: 63 Year
  Sex: Male

DRUGS (1)
  1. AMLODIPINE [Suspect]
     Indication: HYPERTENSION
     Dosage: 10 MG, UNKNOWN
     Route: 065

REACTIONS (3)
  - AGITATION [None]
  - DELIRIUM [None]
  - INSOMNIA [None]
